FAERS Safety Report 19794450 (Version 1)
Quarter: 2021Q3

REPORT INFORMATION
  Report Type: Spontaneous
  Country: JP (occurrence: JP)
  Receive Date: 20210906
  Receipt Date: 20210906
  Transmission Date: 20211014
  Serious: Yes (Hospitalization)
  Sender: FDA-Public Use
  Company Number: JP-DSJP-DSJ-2021-127874AA

PATIENT
  Age: 85 Year
  Sex: Male
  Weight: 59 kg

DRUGS (1)
  1. LIXIANA TABLETS [Suspect]
     Active Substance: EDOXABAN TOSYLATE
     Indication: ATRIAL FIBRILLATION
     Dosage: 30MG/DAY
     Route: 048
     Dates: start: 202106

REACTIONS (4)
  - Haemorrhage subcutaneous [Not Recovered/Not Resolved]
  - Endocarditis bacterial [Recovered/Resolved]
  - Contraindicated product administered [Unknown]
  - Injection site bruising [Recovered/Resolved]

NARRATIVE: CASE EVENT DATE: 2021
